FAERS Safety Report 5779193-X (Version None)
Quarter: 2008Q2

REPORT INFORMATION
  Report Type: 
  Country: None (occurrence: None)
  Receive Date: 20080617
  Receipt Date: 20080617
  Transmission Date: 20081010
  Serious: Yes (Other)
  Sender: FDA-Public Use
  Company Number: 2008AL006716

PATIENT
  Age: 23 Year
  Sex: Male

DRUGS (18)
  1. DIAZEPAM TAB [Suspect]
     Indication: ASPERGER'S DISORDER
  2. NOZINAN [Concomitant]
  3. TRUXAL [Concomitant]
  4. VALLERGAN [Concomitant]
  5. PARALGIN FORTE [Concomitant]
  6. VENTOLIN [Concomitant]
  7. SERETIDE [Concomitant]
  8. ZYRTEC [Concomitant]
  9. STILLNOCT [Concomitant]
  10. SOLVIPECT [Concomitant]
  11. FLUTIDE [Concomitant]
  12. BRONKYL [Concomitant]
  13. DESLORATADINE [Concomitant]
  14. ALOPAM [Concomitant]
  15. SOBRIL [Concomitant]
  16. SOMADRIL [Concomitant]
  17. TRILAFON [Concomitant]
  18. BUSPAR [Concomitant]

REACTIONS (17)
  - AGGRESSION [None]
  - ANXIETY [None]
  - APATHY [None]
  - ASTHMA [None]
  - CIRCADIAN RHYTHM SLEEP DISORDER [None]
  - COMPULSIONS [None]
  - DRUG DEPENDENCE [None]
  - DYSGEUSIA [None]
  - EAR DISCOMFORT [None]
  - HYPERHIDROSIS [None]
  - INCREASED UPPER AIRWAY SECRETION [None]
  - MOOD SWINGS [None]
  - MYALGIA [None]
  - SEXUAL DYSFUNCTION [None]
  - TREATMENT FAILURE [None]
  - TREMOR [None]
  - WEIGHT INCREASED [None]
